FAERS Safety Report 5151014-8 (Version None)
Quarter: 2006Q4

REPORT INFORMATION
  Report Type: 
  Country: None (occurrence: None)
  Receive Date: 20061113
  Receipt Date: 20061113
  Transmission Date: 20070319
  Serious: Yes (Death)
  Sender: FDA-Public Use
  Company Number: None

PATIENT
  Age: 52 Year
  Sex: Male
  Weight: 123 kg

DRUGS (1)
  1. ALBUMIN 25% GRIFOLS [Suspect]
     Indication: HAEMODIALYSIS
     Dates: start: 20061031, end: 20061031

REACTIONS (2)
  - HYPOTENSION [None]
  - POOR QUALITY DRUG ADMINISTERED [None]
